FAERS Safety Report 21697295 (Version 2)
Quarter: 2022Q4

REPORT INFORMATION
  Report Type: Report from Study
  Country: CO (occurrence: CO)
  Receive Date: 20221208
  Receipt Date: 20221229
  Transmission Date: 20230112
  Serious: Yes (Other)
  Sender: FDA-Public Use
  Company Number: CO-002147023-NVSC2022CO027915

PATIENT
  Sex: Male

DRUGS (1)
  1. COSENTYX [Suspect]
     Active Substance: SECUKINUMAB
     Indication: Psoriasis
     Dosage: 300 MG, QMO
     Route: 058

REACTIONS (8)
  - Hypoacusis [Unknown]
  - Irritability [Unknown]
  - Psoriasis [Unknown]
  - Skin haemorrhage [Unknown]
  - Rash [Unknown]
  - Skin burning sensation [Unknown]
  - Dysstasia [Unknown]
  - Product dose omission issue [Unknown]
